FAERS Safety Report 18722867 (Version 4)
Quarter: 2021Q3

REPORT INFORMATION
  Report Type: Spontaneous
  Country: IT (occurrence: IT)
  Receive Date: 20210111
  Receipt Date: 20210926
  Transmission Date: 20211014
  Serious: Yes (Other)
  Sender: FDA-Public Use
  Company Number: IT-AMGEN-ITASP2021002499

PATIENT
  Age: 36 Year
  Sex: Female
  Weight: 85 kg

DRUGS (4)
  1. EVOLOCUMAB [Suspect]
     Active Substance: EVOLOCUMAB
     Indication: TYPE IIA HYPERLIPIDAEMIA
     Dosage: 420 MILLIGRAM, QMO
     Route: 058
     Dates: start: 20140314
  2. ROSUVASTATIN. [Concomitant]
     Active Substance: ROSUVASTATIN
     Dosage: 20 MILLIGRAM, QD
     Dates: start: 2013
  3. ROSUVASTATIN. [Concomitant]
     Active Substance: ROSUVASTATIN
     Dosage: 20 MILLIGRAM, QD
     Dates: start: 2016
  4. ROSUVASTATIN. [Concomitant]
     Active Substance: ROSUVASTATIN
     Dosage: 20 MILLIGRAM, QD
     Dates: start: 2019

REACTIONS (2)
  - Carotid artery stenosis [Recovered/Resolved]
  - Coronary artery occlusion [Recovered/Resolved]
